FAERS Safety Report 22262057 (Version 6)
Quarter: 2024Q3

REPORT INFORMATION
  Report Type: Spontaneous
  Country: CA (occurrence: CA)
  Receive Date: 20230428
  Receipt Date: 20240917
  Transmission Date: 20241016
  Serious: Yes (Life-Threatening, Hospitalization, Other)
  Sender: BAXTER
  Company Number: CA-BAXTER-2023BAX019691

PATIENT
  Age: 35 Year
  Sex: Female

DRUGS (122)
  1. ONDANSETRON [Suspect]
     Active Substance: ONDANSETRON
     Indication: Morning sickness
     Dosage: 4 MILIGRAM AT AN UNSPECIFIED FREQUENCY
     Route: 042
  2. ONDANSETRON [Suspect]
     Active Substance: ONDANSETRON
     Indication: Hyperemesis gravidarum
     Dosage: 8.0 MILLIGRAM (DOSAGE FORM: NOT SPECIFIED) AT AN UNSPECIFIED FREQUENCY
     Route: 042
  3. ONDANSETRON [Suspect]
     Active Substance: ONDANSETRON
     Indication: Nausea
     Dosage: 8.0 MILLIGRAM, 1 EVERY 8 HOURS (DOSAGE FORM: NOT SPECIFIED)
     Route: 042
  4. ONDANSETRON [Suspect]
     Active Substance: ONDANSETRON
     Indication: Vomiting
     Dosage: 8.0 MILLIGRAM AT AN UNSPECIFIED FREQUENCY (DOSAGE FORM: NOT SPECIFIED)
     Route: 065
  5. ONDANSETRON [Suspect]
     Active Substance: ONDANSETRON
     Indication: Antiemetic supportive care
     Dosage: (DOSAGE FORM: NOT SPECIFIED)
     Route: 065
  6. ONDANSETRON [Suspect]
     Active Substance: ONDANSETRON
     Dosage: 8.0 MILLIGRAM
     Route: 065
  7. BUPIVACAINE [Suspect]
     Active Substance: BUPIVACAINE
     Indication: Product used for unknown indication
     Dosage: 1.8 MILLILITER AT AN UNSPECIFIED FREQUENCY (DOSAGE FORM: UNKNOWN)
     Route: 065
  8. BUPIVACAINE [Suspect]
     Active Substance: BUPIVACAINE
     Dosage: 2.0 ML AT AN UNSPECIFIED FREQUENCY
     Route: 065
  9. DEXTROSE [Suspect]
     Active Substance: DEXTROSE\DEXTROSE MONOHYDRATE
     Indication: Sinus tachycardia
     Dosage: (DOSAGE FORM: NOT SPECIFIED), AT AN UNSPECIFIED DOSE AND FREQUENCY
     Route: 065
  10. DEXTROSE [Suspect]
     Active Substance: DEXTROSE\DEXTROSE MONOHYDRATE
     Indication: Serotonin syndrome
     Dosage: DOSAGE FORM: NOT SPECIFIED
     Route: 042
  11. DEXTROSE [Suspect]
     Active Substance: DEXTROSE\DEXTROSE MONOHYDRATE
     Dosage: (DOSAGE FORM: NOT SPECIFIED), AT AN UNSPECIFIED DOSE AND FREQUENCY
     Route: 041
  12. ACETAMINOPHEN [Suspect]
     Active Substance: ACETAMINOPHEN
     Indication: Serotonin syndrome
     Dosage: (DOSAGE FORM: NOT SPECIFIED)
     Route: 065
  13. ACETAMINOPHEN [Suspect]
     Active Substance: ACETAMINOPHEN
     Indication: Body temperature
  14. ACETAMINOPHEN [Suspect]
     Active Substance: ACETAMINOPHEN
     Indication: Pyrexia
  15. AZITHROMYCIN [Suspect]
     Active Substance: AZITHROMYCIN
     Indication: Product used for unknown indication
  16. FENTANYL [Suspect]
     Active Substance: FENTANYL\FENTANYL CITRATE
     Indication: Product used for unknown indication
     Dosage: 10 MICROGRAM (DOSAGE FORM: NOT SPECIFIED )
     Route: 065
  17. FENTANYL [Suspect]
     Active Substance: FENTANYL\FENTANYL CITRATE
     Dosage: UNK
     Route: 065
  18. FENTANYL [Suspect]
     Active Substance: FENTANYL\FENTANYL CITRATE
     Indication: Product used for unknown indication
     Dosage: 10.0 MICROGRAM, AT AN UNSPECIFIED FREQUENCY (DOSAGE FORM: NOT SPECIFIED)
     Route: 065
  19. FENTANYL [Suspect]
     Active Substance: FENTANYL\FENTANYL CITRATE
     Dosage: 10.0 MILLIGRAM, AT AN UNSPECIFIED FREQUENCY (DOSAGE FORM: NOT SPECIFIED)
     Route: 065
  20. FLUTICASONE [Suspect]
     Active Substance: FLUTICASONE
     Indication: Product used for unknown indication
     Dosage: AT AN UNSPECIFIED DOSE AND FREQUENCY, DOSAGE FORM: NOT SPECIFIED
     Route: 065
  21. LEVOTHYROXINE SODIUM [Suspect]
     Active Substance: LEVOTHYROXINE SODIUM
     Indication: Product used for unknown indication
     Dosage: 125 MICROGRAM, 1 EVERY 1 DAY, DOSAGE FORM: NOT SPECIFIED
     Route: 065
  22. LEVOTHYROXINE SODIUM [Suspect]
     Active Substance: LEVOTHYROXINE SODIUM
     Dosage: 1 EVERY 1 DAYS (AT AN UNSPECIFIED DOSE)
     Route: 065
  23. MORPHINE SULFATE [Suspect]
     Active Substance: MORPHINE SULFATE
     Indication: Product used for unknown indication
     Dosage: 100 MICROGRAM AT AN UNSPECIFIED FREQUENCY, DOSAGE FORM: NOT SPECIFIED
     Route: 065
  24. MORPHINE SULFATE [Suspect]
     Active Substance: MORPHINE SULFATE
     Dosage: 100 MILLIGRAM AT AN UNSPECIFIED FREQUENCY, DOSAGE FORM: NOT SPECIFIED
     Route: 065
  25. OMEPRAZOLE [Suspect]
     Active Substance: OMEPRAZOLE
     Indication: Product used for unknown indication
     Dosage: 40 MILLIGRAM, 1 EVERY 1 DAY, DOSAGE FORM: NOT SPECIFIED
     Route: 048
  26. OXYTOCIN [Suspect]
     Active Substance: OXYTOCIN
     Indication: Uterine contractions during pregnancy
     Dosage: AT AN UNSPECIFIED DOSE AND FREQUENCY, DOSAGE FORM: NOT SPECIFIED
     Route: 042
  27. OXYTOCIN [Suspect]
     Active Substance: OXYTOCIN
     Indication: Uterine contractions during pregnancy
     Route: 042
  28. PHENYLEPHRINE HYDROCHLORIDE [Suspect]
     Active Substance: PHENYLEPHRINE HYDROCHLORIDE
     Indication: Product used for unknown indication
     Dosage: 650 MICROGRAM AT AN UNSPECIFIED FREQUENCY, DOSAGE FORM: NOT SPECIFIED
     Route: 042
  29. PHENYLEPHRINE [Suspect]
     Active Substance: PHENYLEPHRINE HYDROCHLORIDE
     Indication: Product used for unknown indication
     Dosage: AT AN UNSPECIFIED DOSE AND FREQUENCY (DOSAGE FORM: SOLUTION OPHTHALMIC)
     Route: 042
  30. AZITHROMYCIN ANHYDROUS [Suspect]
     Active Substance: AZITHROMYCIN ANHYDROUS
     Indication: Product used for unknown indication
     Dosage: AT AN UNSPECIFIED DOSE AND FREQUENCY, DOSAGE FORM: NOT SPECIFIED
  31. ALBUTEROL [Suspect]
     Active Substance: ALBUTEROL
     Indication: Product used for unknown indication
     Dosage: AT AN UNSPECIFIED DOSE AND FREQUENCY, DOSAGE FORM: NOT SPECIFIED
  32. SALMETEROL XINAFOATE [Suspect]
     Active Substance: SALMETEROL XINAFOATE
     Indication: Product used for unknown indication
  33. TOBRAMYCIN [Suspect]
     Active Substance: TOBRAMYCIN\TOBRAMYCIN SULFATE
     Indication: Product used for unknown indication
     Dosage: AT AN UNSPECIFIED DOSE AND FREQUENCY, DOSAGE FORM: NOT SPECIFIED
  34. TOBRAMYCIN SULFATE [Suspect]
     Active Substance: TOBRAMYCIN SULFATE
     Indication: Product used for unknown indication
  35. SEREVENT DISKUS [Suspect]
     Active Substance: SALMETEROL XINAFOATE
     Indication: Product used for unknown indication
     Dosage: AT AN UNSPECIFIED DOSE AND FREQUENCY, DOSAGE FORM: NOT SPECIFIED
  36. ACETAMINOPHEN [Suspect]
     Active Substance: ACETAMINOPHEN
     Indication: Body temperature increased
     Dosage: 1.0 GRAM (DOSAGE FORM: NOT SPECIFIED)
     Route: 048
  37. ACETAMINOPHEN [Suspect]
     Active Substance: ACETAMINOPHEN
     Indication: Serotonin syndrome
     Dosage: UNK
     Route: 065
  38. ACETAMINOPHEN [Suspect]
     Active Substance: ACETAMINOPHEN
     Indication: Pyrexia
  39. ACETAMINOPHEN [Suspect]
     Active Substance: ACETAMINOPHEN
     Indication: Body temperature
  40. DIMENHYDRINATE [Suspect]
     Active Substance: DIMENHYDRINATE
     Indication: Morning sickness
     Dosage: 50.0 MILLIGRAM (DOSAGE FORM: NOT SPECIFIED)
     Route: 042
  41. DIMENHYDRINATE [Suspect]
     Active Substance: DIMENHYDRINATE
     Indication: Hyperemesis gravidarum
     Dosage: (DOSAGE FORM: NOT SPECIFIED) AT AN UNSPECIFIED DOSE AND FREQUENCY
     Route: 065
  42. DIMENHYDRINATE [Suspect]
     Active Substance: DIMENHYDRINATE
     Indication: Vomiting
     Dosage: (DOSAGE FORM: UNKNOWN) AT AN UNSPECIFIED DOSE AND FREQUENCY
     Route: 048
  43. DIMENHYDRINATE [Suspect]
     Active Substance: DIMENHYDRINATE
     Indication: Nausea
     Dosage: 50.0 MILLIGRAM, 1 EVERY 4 HOURS (DOSAGE FORM: NOT SPECIFIED)
     Route: 042
  44. DIMENHYDRINATE [Suspect]
     Active Substance: DIMENHYDRINATE
     Indication: Antiemetic supportive care
     Dosage: 50.0 MILLIGRAM 1 EVERY 4 HOURS
     Route: 042
  45. DIMENHYDRINATE [Suspect]
     Active Substance: DIMENHYDRINATE
     Dosage: (DOSAGE FORM: NOT SPECIFIED), UNSPCIFED DOSE AND AS REQUIRED
     Route: 065
  46. DIMENHYDRINATE [Suspect]
     Active Substance: DIMENHYDRINATE
     Dosage: UNK
     Route: 048
  47. FAMOTIDINE [Suspect]
     Active Substance: FAMOTIDINE
     Indication: Morning sickness
     Dosage: 20.0 MILLIGRAM AT AN UNSPECIFIED FREQUENCY (DOSAGE FORM: NOT SPECIFIED)
     Route: 042
  48. FAMOTIDINE [Suspect]
     Active Substance: FAMOTIDINE
     Indication: Hyperemesis gravidarum
     Dosage: 20.0 MILLIGRAM, 1 EVERY 1 DAYS (DOSAGE FORM: NOT SPECIFIED)
     Route: 042
  49. FAMOTIDINE [Suspect]
     Active Substance: FAMOTIDINE
     Indication: Nausea
     Dosage: (DOSAGE FORM: NOT SPECIFIED) AT AN UNSPECIFIED DOSE AND FREQUENCY
     Route: 042
  50. FAMOTIDINE [Suspect]
     Active Substance: FAMOTIDINE
     Indication: Vomiting
     Dosage: (DOSAGE FORM: UNKNOWN) AT AN UNSPECIFIED DOSE AND FREQUENCY
     Route: 048
  51. FAMOTIDINE [Suspect]
     Active Substance: FAMOTIDINE
     Dosage: 20.0 MILLIGRAM 1 EVERY 1 DAYS
     Route: 042
  52. FAMOTIDINE [Suspect]
     Active Substance: FAMOTIDINE
     Dosage: UNK
     Route: 048
  53. FAMOTIDINE [Suspect]
     Active Substance: FAMOTIDINE
     Dosage: UNK
     Route: 042
  54. FAMOTIDINE [Suspect]
     Active Substance: FAMOTIDINE
     Dosage: (DOSAGE FORM: NOT SPECIFIED)
     Route: 048
  55. FAMOTIDINE [Suspect]
     Active Substance: FAMOTIDINE
     Dosage: (DOSAGE FORM: NOT SPECIFIED) AT AN UNSPECIFIED DOSE AND FREQUENCY
     Route: 065
  56. DOXYLAMINE SUCCINATE AND PYRIDOXINE HYDROCHLORIDE [Suspect]
     Active Substance: DOXYLAMINE SUCCINATE\PYRIDOXINE HYDROCHLORIDE
     Indication: Morning sickness
     Dosage: 10.0 MILLIGRAM 4 EVERY 1 DAYS (DOSAGE FORM: TABLET DELAYED- RELEASE)
     Route: 048
  57. DOXYLAMINE SUCCINATE AND PYRIDOXINE HYDROCHLORIDE [Suspect]
     Active Substance: DOXYLAMINE SUCCINATE\PYRIDOXINE HYDROCHLORIDE
     Indication: Hyperemesis gravidarum
  58. PROCHLORPERAZINE [Suspect]
     Active Substance: PROCHLORPERAZINE
     Indication: Morning sickness
     Dosage: 10.0 MILLIGRAM, 4 EVERY 1 DAYS (DOSAGE FORM: NOT SPECIFIED)
     Route: 048
  59. PROCHLORPERAZINE [Suspect]
     Active Substance: PROCHLORPERAZINE
     Indication: Nausea
     Dosage: 5.0 MILLIGRAM, 4 EVERY 1 DAYS (DOSAGE FORM: NOT SPECIFIED)
     Route: 048
  60. PROCHLORPERAZINE [Suspect]
     Active Substance: PROCHLORPERAZINE
     Indication: Hyperemesis gravidarum
     Dosage: 10.0 MILLIGRAM, AT AN UNSPECIFIED FREQUENCY
     Route: 048
  61. PROCHLORPERAZINE [Suspect]
     Active Substance: PROCHLORPERAZINE
     Indication: Vomiting
     Dosage: 5.0 MILLIGRAM AT AN UNSPECIFIED FREQUENCY  (DOSAGE FORM: NOT SPECIFIED)
     Route: 048
  62. PROCHLORPERAZINE [Suspect]
     Active Substance: PROCHLORPERAZINE
     Indication: Antiemetic supportive care
     Dosage: 5.0 MILLIGRAM, 1 EVERY 6 HOURS (DOSAGE FORM: NOT SPECIFIED) (THERAPY DURATION: 2.0 DAYS)
     Route: 048
  63. PROCHLORPERAZINE [Suspect]
     Active Substance: PROCHLORPERAZINE
     Route: 065
  64. PROCHLORPERAZINE [Suspect]
     Active Substance: PROCHLORPERAZINE
     Dosage: 10.0 MILLIGRAM, 1 EVERY 6 HOURS
     Route: 048
  65. PROCHLORPERAZINE [Suspect]
     Active Substance: PROCHLORPERAZINE
     Dosage: 5.0 MILLIGRAM 4 EVERY 1 DAYS
     Route: 048
  66. PROCHLORPERAZINE [Suspect]
     Active Substance: PROCHLORPERAZINE
     Dosage: 5.0 MILLIGRAM, 1 EVERY 6 HOURS
     Route: 048
  67. PROCHLORPERAZINE [Suspect]
     Active Substance: PROCHLORPERAZINE
     Dosage: 5.0 MILLIGRAM, 1 EVERY 6 HOURS (DOSAGE FORM: NOT SPECIFIED)
     Route: 048
  68. PROCHLORPERAZINE [Suspect]
     Active Substance: PROCHLORPERAZINE
     Dosage: 10.0 MILLIGRAM, 1 EVERY 6 HOURS (DOSAGE FORM: NOT SPECIFIED)
     Route: 048
  69. PROCHLORPERAZINE [Suspect]
     Active Substance: PROCHLORPERAZINE
     Dosage: 5.0 MILLIGRAM, 1 EVERY 6 HOURS
     Route: 048
  70. PROCHLORPERAZINE [Suspect]
     Active Substance: PROCHLORPERAZINE
     Dosage: (DOSAGE FORM: NOT SPECIFIED)
     Route: 048
  71. SUMATRIPTAN SUCCINATE [Suspect]
     Active Substance: SUMATRIPTAN SUCCINATE
     Indication: Migraine
     Dosage: 50.0 MILLIGRAM, AT AN UNSPECIFIED FREQUENCY (DOSAGE FORM: UNKNOWN)
     Route: 048
  72. SUMATRIPTAN SUCCINATE [Suspect]
     Active Substance: SUMATRIPTAN SUCCINATE
     Dosage: 50.0 MILLIGRAM, AT AN UNSPECIFIED FREQUENCY
     Route: 048
  73. SUMATRIPTAN SUCCINATE [Suspect]
     Active Substance: SUMATRIPTAN SUCCINATE
     Dosage: 50.0 MILLIGRAM, 1 EVERY 6 HOURS
     Route: 048
  74. SUMATRIPTAN SUCCINATE [Suspect]
     Active Substance: SUMATRIPTAN SUCCINATE
     Dosage: UNK
     Route: 065
  75. DOXYLAMINE SUCCINATE\PYRIDOXINE HYDROCHLORIDE [Suspect]
     Active Substance: DOXYLAMINE SUCCINATE\PYRIDOXINE HYDROCHLORIDE
     Indication: Hyperemesis gravidarum
     Dosage: 40.0 MILLIGRAM, 1 EVERY 1 DAYS
     Route: 048
  76. DOXYLAMINE SUCCINATE\PYRIDOXINE HYDROCHLORIDE [Suspect]
     Active Substance: DOXYLAMINE SUCCINATE\PYRIDOXINE HYDROCHLORIDE
     Indication: Vomiting
     Dosage: 20.0 MILLIGRAM, 1 EVERY 1 DAYS (DOSAGE FORM: UNKNOWN)
     Route: 048
  77. DOXYLAMINE SUCCINATE\PYRIDOXINE HYDROCHLORIDE [Suspect]
     Active Substance: DOXYLAMINE SUCCINATE\PYRIDOXINE HYDROCHLORIDE
     Indication: Nausea
     Dosage: 10.0 MILLIGRAM, 1 EVERY 12 HOURS
     Route: 048
  78. DOXYLAMINE SUCCINATE\PYRIDOXINE HYDROCHLORIDE [Suspect]
     Active Substance: DOXYLAMINE SUCCINATE\PYRIDOXINE HYDROCHLORIDE
     Indication: Morning sickness
     Dosage: 1 DOSAGE FORMS, 1 EVERY 1 DAYS
     Route: 048
  79. DOXYLAMINE SUCCINATE\PYRIDOXINE HYDROCHLORIDE [Suspect]
     Active Substance: DOXYLAMINE SUCCINATE\PYRIDOXINE HYDROCHLORIDE
     Dosage: UNK
     Route: 048
  80. DOXYLAMINE SUCCINATE\PYRIDOXINE HYDROCHLORIDE [Suspect]
     Active Substance: DOXYLAMINE SUCCINATE\PYRIDOXINE HYDROCHLORIDE
     Dosage: UNK
     Route: 065
  81. SUMATRIPTAN [Suspect]
     Active Substance: SUMATRIPTAN\SUMATRIPTAN SUCCINATE
     Indication: Migraine
     Dosage: (DOSAGE FORM: NOT SPECIFIED) AT AN UNSPECIFIED DOSE AND FREQUENCY
     Route: 065
  82. SUMATRIPTAN [Suspect]
     Active Substance: SUMATRIPTAN\SUMATRIPTAN SUCCINATE
     Dosage: 1.0 DOSAGE FORMS, AT AN UNSPECIFIED FREQUENCY
     Route: 048
  83. SUMATRIPTAN [Suspect]
     Active Substance: SUMATRIPTAN\SUMATRIPTAN SUCCINATE
     Dosage: 50.0 MILLIGRAM AT UNSPECIFIED FREQUENCY
     Route: 048
  84. SUMATRIPTAN [Suspect]
     Active Substance: SUMATRIPTAN\SUMATRIPTAN SUCCINATE
     Dosage: 1.0 DOSAGE FORMS, TOTAL
     Route: 065
  85. PYRIDOXINE [Suspect]
     Active Substance: PYRIDOXINE
     Indication: Vomiting
     Dosage: 3 EVERY 1 DAYS AT UNSPECIFIED DOSE
     Route: 048
  86. PYRIDOXINE [Suspect]
     Active Substance: PYRIDOXINE
     Indication: Nausea
     Dosage: 1.0 DOSAGE FORMS (DOSAGE FORM: NOT SPECIFIED)
     Route: 048
  87. PYRIDOXINE [Suspect]
     Active Substance: PYRIDOXINE
     Indication: Morning sickness
     Dosage: 30 MILLIGRAMS, 3 EVERY 1 DAYS (DOSAGE FORM: NOT SPECIFIED)
     Route: 048
  88. PYRIDOXINE [Suspect]
     Active Substance: PYRIDOXINE
     Indication: Antiemetic supportive care
  89. LORAZEPAM [Suspect]
     Active Substance: LORAZEPAM
     Indication: Serotonin syndrome
     Dosage: 2.0 GRAM (DOSAGE FORM: NOT SPECIFIED)
     Route: 042
  90. LORAZEPAM [Suspect]
     Active Substance: LORAZEPAM
     Dosage: 1.0 GRAM AT UNSPECIFIED FREQUENCY
     Route: 042
  91. LORAZEPAM [Suspect]
     Active Substance: LORAZEPAM
     Dosage: 1.0 MILLIGRAM AT UNSPECIFIED FREQUENCY
     Route: 048
  92. LORAZEPAM [Suspect]
     Active Substance: LORAZEPAM
     Dosage: 1.0 MILLIGRAM, (DOSAGE FORM: NOT SPECIFIED)
     Route: 042
  93. LORAZEPAM [Suspect]
     Active Substance: LORAZEPAM
     Dosage: 2.0 MILLIGRAM 4 EVERY 1 DAYS (DOSAGE FORM: NOT SPECIFIED)
     Route: 042
  94. LORAZEPAM [Suspect]
     Active Substance: LORAZEPAM
     Dosage: 1.0 MILLIGRAM, DOSAGE FORM: NOT SPECIFIED
     Route: 042
  95. LORAZEPAM [Suspect]
     Active Substance: LORAZEPAM
     Dosage: 1.0 MILLIGRAM (DOSAGE FORM: NOT SPECIFIED)
     Route: 048
  96. DOXYLAMINE SUCCINATE [Suspect]
     Active Substance: DOXYLAMINE SUCCINATE
     Indication: Nausea
     Dosage: 1.0 DOSAGE FORMS AT UNSPECIFIED FREQUENCY
     Route: 048
  97. DOXYLAMINE SUCCINATE [Suspect]
     Active Substance: DOXYLAMINE SUCCINATE
     Indication: Vomiting
     Dosage: 3 EVERY 1 DAYS AT UNSPECIFIED DOSE
     Route: 048
  98. DOXYLAMINE SUCCINATE [Suspect]
     Active Substance: DOXYLAMINE SUCCINATE
     Indication: Morning sickness
     Dosage: 30 MILLIGRAMS 3 EVERY 1 DAYS
     Route: 048
  99. DOXYLAMINE SUCCINATE [Suspect]
     Active Substance: DOXYLAMINE SUCCINATE
     Indication: Antiemetic supportive care
  100. ONDANSETRON [Suspect]
     Active Substance: ONDANSETRON
     Indication: Morning sickness
     Dosage: UNK
     Route: 065
  101. ONDANSETRON [Suspect]
     Active Substance: ONDANSETRON
     Indication: Hyperemesis gravidarum
  102. METOCLOPRAMIDE [Suspect]
     Active Substance: METOCLOPRAMIDE
     Indication: Product used for unknown indication
     Dosage: UNK
     Route: 065
  103. ONDANSETRON HYDROCHLORIDE [Suspect]
     Active Substance: ONDANSETRON HYDROCHLORIDE
     Indication: Nausea
     Dosage: UNK
     Route: 048
  104. ONDANSETRON HYDROCHLORIDE [Suspect]
     Active Substance: ONDANSETRON HYDROCHLORIDE
     Indication: Vomiting
     Dosage: 8.0 MILLIGRAM, 1 EVERY 8 HOURS
     Route: 042
  105. ONDANSETRON HYDROCHLORIDE [Suspect]
     Active Substance: ONDANSETRON HYDROCHLORIDE
     Indication: Morning sickness
  106. ONDANSETRON HYDROCHLORIDE [Suspect]
     Active Substance: ONDANSETRON HYDROCHLORIDE
     Indication: Hyperemesis gravidarum
  107. DOXYLAMINE SUCCINATE\PYRIDOXINE HYDROCHLORIDE [Suspect]
     Active Substance: DOXYLAMINE SUCCINATE\PYRIDOXINE HYDROCHLORIDE
     Indication: Vomiting
     Dosage: 10.0 MILLIGRAM 1 EVERY 12 HOURS
     Route: 048
  108. DOXYLAMINE SUCCINATE\PYRIDOXINE HYDROCHLORIDE [Suspect]
     Active Substance: DOXYLAMINE SUCCINATE\PYRIDOXINE HYDROCHLORIDE
     Indication: Nausea
     Dosage: 20.0 MILLIGRAM 1 EVERY 1 DAYS
     Route: 048
  109. DOXYLAMINE SUCCINATE\PYRIDOXINE HYDROCHLORIDE [Suspect]
     Active Substance: DOXYLAMINE SUCCINATE\PYRIDOXINE HYDROCHLORIDE
     Indication: Morning sickness
  110. DOXYLAMINE SUCCINATE\PYRIDOXINE HYDROCHLORIDE [Suspect]
     Active Substance: DOXYLAMINE SUCCINATE\PYRIDOXINE HYDROCHLORIDE
     Indication: Hyperemesis gravidarum
  111. DEXTROSE [Suspect]
     Active Substance: DEXTROSE\DEXTROSE MONOHYDRATE
     Indication: Serotonin syndrome
     Dosage: (DOSAGE FORM: NOT SPECIFIED)
     Route: 041
  112. DEXTROSE [Suspect]
     Active Substance: DEXTROSE\DEXTROSE MONOHYDRATE
     Dosage: (DOSAGE FORM: NOT SPECIFIED)
     Route: 042
  113. DEXTROSE [Suspect]
     Active Substance: DEXTROSE\DEXTROSE MONOHYDRATE
     Dosage: UNK
     Route: 065
  114. DOXYLAMINE [Suspect]
     Active Substance: DOXYLAMINE
     Indication: Morning sickness
     Dosage: 1.0 DOSAGE FORMS
     Route: 048
  115. DOXYLAMINE SUCCINATE\PYRIDOXINE HYDROCHLORIDE [Suspect]
     Active Substance: DOXYLAMINE SUCCINATE\PYRIDOXINE HYDROCHLORIDE
     Indication: Morning sickness
     Dosage: 10.0 MILLIGRAM, AT AN UNSPECIFIED FREQUENCY
     Route: 048
  116. DOXYLAMINE SUCCINATE\PYRIDOXINE HYDROCHLORIDE [Suspect]
     Active Substance: DOXYLAMINE SUCCINATE\PYRIDOXINE HYDROCHLORIDE
     Indication: Hyperemesis gravidarum
     Dosage: 20.0 MILLIGRAM, AT AN UNSPECIFIED FREQUENCY
     Route: 048
  117. DOXYLAMINE SUCCINATE\PYRIDOXINE HYDROCHLORIDE [Suspect]
     Active Substance: DOXYLAMINE SUCCINATE\PYRIDOXINE HYDROCHLORIDE
     Indication: Nausea
     Dosage: 10.0 MILLIGRAM 1 EVERY 6 HOURS
     Route: 048
  118. DOXYLAMINE SUCCINATE\PYRIDOXINE HYDROCHLORIDE [Suspect]
     Active Substance: DOXYLAMINE SUCCINATE\PYRIDOXINE HYDROCHLORIDE
     Indication: Vomiting
     Dosage: UNK
     Route: 065
  119. SODIUM BICARBONATE [Suspect]
     Active Substance: SODIUM BICARBONATE
     Indication: Sinus tachycardia
     Dosage: (DOSAGE FORM: NOT SPECIFIED)
     Route: 065
  120. SODIUM BICARBONATE [Suspect]
     Active Substance: SODIUM BICARBONATE
     Indication: Serotonin syndrome
     Dosage: 3.0 DOSAGE FORMS (DOSAGE FORM: NOT SPECIFIED)
     Route: 042
  121. SODIUM BICARBONATE [Suspect]
     Active Substance: SODIUM BICARBONATE
     Dosage: UNK
     Route: 065
  122. SUMATRIPTAN [Concomitant]
     Active Substance: SUMATRIPTAN\SUMATRIPTAN SUCCINATE
     Indication: Migraine
     Dosage: DOSAGE FORM: NOT SPECIFIED
     Route: 065

REACTIONS (26)
  - Ventilation perfusion mismatch [Recovering/Resolving]
  - Abortion spontaneous [Recovered/Resolved]
  - Clonus [Recovered/Resolved]
  - Drug ineffective [Recovered/Resolved]
  - Emotional distress [Recovered/Resolved]
  - Exposure during pregnancy [Recovered/Resolved]
  - Extensor plantar response [Recovered/Resolved]
  - Foetal heart rate abnormal [Recovered/Resolved]
  - Hyperhidrosis [Recovered/Resolved]
  - Hypertonia [Recovered/Resolved]
  - Muscle contractions involuntary [Recovered/Resolved]
  - Muscle spasticity [Recovered/Resolved]
  - Myalgia [Recovered/Resolved]
  - Sinus tachycardia [Recovered/Resolved]
  - Drug ineffective for unapproved indication [Recovered/Resolved]
  - Therapy non-responder [Recovered/Resolved]
  - Off label use [Recovered/Resolved]
  - Hypoxia [Recovering/Resolving]
  - Maternal exposure during pregnancy [Recovered/Resolved]
  - Serotonin syndrome [Recovered/Resolved]
  - Hyperreflexia [Recovered/Resolved]
  - Tachycardia [Recovered/Resolved]
  - Tremor [Recovered/Resolved]
  - Pyrexia [Recovered/Resolved]
  - Body temperature increased [Recovered/Resolved]
  - Anaphylactic reaction [Recovered/Resolved]
